FAERS Safety Report 15324704 (Version 1)
Quarter: 2018Q3

REPORT INFORMATION
  Report Type: Spontaneous
  Country: ZA (occurrence: ZA)
  Receive Date: 20180828
  Receipt Date: 20180828
  Transmission Date: 20181010
  Serious: Yes (Hospitalization, Other)
  Sender: FDA-Public Use
  Company Number: ZA-FLAMINGO-002074

PATIENT
  Age: 24 Year
  Sex: Female

DRUGS (3)
  1. METRONIDAZOLE. [Suspect]
     Active Substance: METRONIDAZOLE
     Indication: URINARY TRACT INFECTION
  2. AZITHROMYCIN ANHYDROUS. [Suspect]
     Active Substance: AZITHROMYCIN ANHYDROUS
     Indication: URINARY TRACT INFECTION
  3. CALCIUM CHLORIDE ANHYDROUS/POTASSIUM CHLORIDE/SODIUM LACTATE [Concomitant]
     Indication: PREMATURE LABOUR

REACTIONS (5)
  - Vomiting [Recovered/Resolved]
  - Condition aggravated [Recovered/Resolved]
  - Foetal heart rate deceleration abnormality [Recovered/Resolved]
  - Maternal exposure during pregnancy [Unknown]
  - Premature labour [Recovered/Resolved]
